FAERS Safety Report 5389584-7 (Version None)
Quarter: 2007Q3

REPORT INFORMATION
  Report Type: 
  Country: None (occurrence: None)
  Receive Date: 20070713
  Receipt Date: 20070628
  Transmission Date: 20080115
  Serious: Yes (Hospitalization)
  Sender: FDA-Public Use
  Company Number: DSJ-2007-02484

PATIENT
  Age: 77 Year
  Sex: Female
  Weight: 59 kg

DRUGS (6)
  1. OLMETEC (OLMESARTAN MEDOXOMIL) (TABLET) (OLMESARTAN MEDOXOMIL) [Suspect]
     Indication: ESSENTIAL HYPERTENSION
     Dosage: 10 MG (10 MG, 1 IN 1 D), PER ORAL
     Route: 048
     Dates: start: 20061027, end: 20070328
  2. OLMETEC (OLMESARTAN MEDOXOMIL) (TABLET) (OLMESARTAN MEDOXOMIL) [Suspect]
     Indication: ESSENTIAL HYPERTENSION
     Dosage: 10 MG (10 MG, 1 IN 1 D), PER ORAL
     Route: 048
     Dates: start: 20070421
  3. INDAPAMIDE [Suspect]
     Dosage: 1 MG (1 MG, 1 IN 1 D), PER ORAL
     Route: 048
     Dates: end: 20061027
  4. INDAPAMIDE [Suspect]
     Dosage: 1 MG (1 MG, 1 IN 1 D), PER ORAL
     Route: 048
     Dates: start: 20061209, end: 20070328
  5. BAKUMONDOUTO (HERBAL EXTRACT NOS) (HERBAL EXTRACT NOS) [Concomitant]
  6. AMARYL (GLIMEPIRIDE) (GLIMEPIRIDE) [Concomitant]

REACTIONS (7)
  - BACK INJURY [None]
  - DEHYDRATION [None]
  - FALL [None]
  - MALAISE [None]
  - ORAL INTAKE REDUCED [None]
  - RENAL FAILURE ACUTE [None]
  - SHOCK [None]
